FAERS Safety Report 4470861-9 (Version None)
Quarter: 2004Q4

REPORT INFORMATION
  Report Type: 
  Country: None (occurrence: None)
  Receive Date: 20041011
  Receipt Date: 20040930
  Transmission Date: 20050328
  Serious: Yes (Hospitalization)
  Sender: FDA-Public Use
  Company Number: FR-JNJFOC-20041000039

PATIENT
  Age: 56 Year
  Sex: Male

DRUGS (6)
  1. RISPERDAL [Suspect]
     Route: 049
  2. RISPERDAL [Suspect]
     Route: 049
  3. TERCIAN [Concomitant]
  4. ATHYMIL [Concomitant]
  5. SERESTA [Concomitant]
  6. DEPAKOTE [Concomitant]

REACTIONS (2)
  - HYPONATRAEMIA [None]
  - INFECTION [None]
